FAERS Safety Report 12920902 (Version 1)
Quarter: 2016Q4

REPORT INFORMATION
  Report Type: Spontaneous
  Country: US (occurrence: US)
  Receive Date: 20161107
  Receipt Date: 20161107
  Transmission Date: 20170207
  Serious: Yes (Other)
  Sender: FDA-Public Use
  Company Number: None

PATIENT
  Age: 67 Year
  Sex: Female
  Weight: 60.75 kg

DRUGS (17)
  1. ERGOCALCIDEROL [Concomitant]
  2. TUMS [Concomitant]
     Active Substance: CALCIUM CARBONATE
  3. FOLIC ACID. [Concomitant]
     Active Substance: FOLIC ACID
  4. METFORMIN [Suspect]
     Active Substance: METFORMIN HYDROCHLORIDE
     Indication: TYPE 2 DIABETES MELLITUS
     Dosage: QUANTITY:60 TABLET(S); TWICE A DAY; ORAL?
     Route: 048
  5. CYANOCOBALAMIN. [Concomitant]
     Active Substance: CYANOCOBALAMIN
  6. ZONISAMIDE. [Concomitant]
     Active Substance: ZONISAMIDE
  7. OMEPRAZOLE PRODIGY GLUCOSE MACHINE [Concomitant]
  8. CLONAZEPAM. [Concomitant]
     Active Substance: CLONAZEPAM
  9. IRON [Concomitant]
     Active Substance: IRON
  10. GLIPIZIDE. [Concomitant]
     Active Substance: GLIPIZIDE
  11. POLYETHYLENE GLYCOL [Concomitant]
     Active Substance: POLYETHYLENE GLYCOLS
  12. METOPROLOL. [Concomitant]
     Active Substance: METOPROLOL
  13. HYDROXINE/APAP [Concomitant]
  14. LAMOTRIGINE CLONAZEPAM [Concomitant]
  15. FUROSEMIDE. [Concomitant]
     Active Substance: FUROSEMIDE
  16. ATORVASTIN [Concomitant]
     Active Substance: ATORVASTATIN
  17. WHEY PROTEIN [Concomitant]

REACTIONS (2)
  - Pruritus [None]
  - Formication [None]

NARRATIVE: CASE EVENT DATE: 20160909
